FAERS Safety Report 18687384 (Version 3)
Quarter: 2021Q1

REPORT INFORMATION
  Report Type: Report from Study
  Country: US (occurrence: US)
  Receive Date: 20201231
  Receipt Date: 20210210
  Transmission Date: 20210419
  Serious: Yes (Life-Threatening, Hospitalization)
  Sender: FDA-Public Use
  Company Number: US-ASTRAZENECA-2020SF75329

PATIENT
  Age: 89 Year
  Sex: Female
  Weight: 78.4 kg

DRUGS (1)
  1. CALQUENCE [Suspect]
     Active Substance: ACALABRUTINIB
     Indication: CHRONIC LYMPHOCYTIC LEUKAEMIA
     Route: 048
     Dates: start: 20201211, end: 20201222

REACTIONS (5)
  - Cerebrovascular accident [Unknown]
  - Cardiomyopathy [Unknown]
  - Mental status changes [Unknown]
  - Blood sodium decreased [Unknown]
  - Hyponatraemia [Unknown]
